FAERS Safety Report 10231247 (Version 1)
Quarter: 2014Q2

REPORT INFORMATION
  Report Type: Spontaneous
  Country: IT (occurrence: IT)
  Receive Date: 20140611
  Receipt Date: 20140611
  Transmission Date: 20141212
  Serious: Yes (Other)
  Sender: FDA-Public Use
  Company Number: IT-WATSON-2014-12738

PATIENT
  Age: 56 Year
  Sex: Female

DRUGS (5)
  1. CLOBETASOL PROPIONATE (AMALLC) [Suspect]
     Indication: PEMPHIGOID
     Dosage: 0.05 %, UNK IN 4% HYDROXYETHYLCELLULOSE BIOADHESIVE GEL
     Route: 061
     Dates: start: 200211
  2. BETAMETHASONE (UNKNOWN) [Suspect]
     Indication: PEMPHIGOID
     Dosage: UNK; TWICE DAILY
     Route: 061
     Dates: start: 200302
  3. PREDNISONE (UNKNOWN) [Suspect]
     Indication: PEMPHIGOID
     Dosage: 50 MG, DAILY
     Route: 065
     Dates: start: 200409
  4. DELTACORTENE [Suspect]
     Indication: PEMPHIGOID
     Dosage: 25 MG, DAILY
     Route: 065
     Dates: start: 200302
  5. AZATHIOPRINE [Concomitant]
     Indication: PEMPHIGOID
     Dosage: 75 MG, DAILY
     Route: 065
     Dates: start: 200409

REACTIONS (2)
  - Hypothalamic pituitary adrenal axis suppression [Recovered/Resolved]
  - Cushing^s syndrome [Recovering/Resolving]
